FAERS Safety Report 17810568 (Version 2)
Quarter: 2020Q4

REPORT INFORMATION
  Report Type: Spontaneous
  Country: JP (occurrence: JP)
  Receive Date: 20200521
  Receipt Date: 20201012
  Transmission Date: 20210113
  Serious: Yes (Hospitalization)
  Sender: FDA-Public Use
  Company Number: JP-LUPIN PHARMACEUTICALS INC.-2020-02273

PATIENT
  Age: 35 Year
  Sex: Male

DRUGS (3)
  1. NIACIN. [Suspect]
     Active Substance: NIACIN
     Indication: SNEEZING
  2. NIACIN. [Suspect]
     Active Substance: NIACIN
     Indication: SEASONAL ALLERGY
  3. NIACIN. [Suspect]
     Active Substance: NIACIN
     Indication: NASAL CONGESTION
     Dosage: 500 MILLIGRAM, SINGLE
     Route: 048

REACTIONS (10)
  - Throat irritation [Recovered/Resolved]
  - Blood pressure diastolic decreased [Recovered/Resolved]
  - Respiratory rate increased [Recovered/Resolved]
  - Heart rate increased [Recovered/Resolved]
  - Pruritus [Recovered/Resolved]
  - Burning sensation [Recovered/Resolved]
  - Wheezing [Recovered/Resolved]
  - Tachypnoea [Recovered/Resolved]
  - Flushing [Recovered/Resolved]
  - Overdose [Unknown]
